FAERS Safety Report 4846816-9 (Version None)
Quarter: 2005Q4

REPORT INFORMATION
  Report Type: 
  Country: None (occurrence: None)
  Receive Date: 20051207
  Receipt Date: 20051012
  Transmission Date: 20060501
  Serious: Yes (Hospitalization)
  Sender: FDA-Public Use
  Company Number: PHBS2005JP15125

PATIENT
  Age: 58 Year
  Sex: Male

DRUGS (5)
  1. TEGRETOL [Suspect]
     Indication: HYPOAESTHESIA
     Dosage: 100 MG, TID
     Route: 048
     Dates: start: 20050201, end: 20050727
  2. MUCOSTA [Suspect]
     Indication: HYPOAESTHESIA
     Dosage: 100 MG, TID
     Route: 048
     Dates: start: 20050201, end: 20050727
  3. LOXOPROFEN SODIUM [Suspect]
     Indication: HYPOAESTHESIA
     Route: 048
     Dates: start: 20050201, end: 20050727
  4. MICARDIS [Concomitant]
     Indication: HYPERTENSION
     Route: 048
     Dates: start: 20050701, end: 20050801
  5. EUGLUCON [Concomitant]
     Indication: DIABETES MELLITUS
     Route: 048

REACTIONS (14)
  - ALANINE AMINOTRANSFERASE INCREASED [None]
  - ASPARTATE AMINOTRANSFERASE INCREASED [None]
  - DRUG HYPERSENSITIVITY [None]
  - EOSINOPHIL COUNT INCREASED [None]
  - HUMAN HERPES VIRUS 6 SEROLOGY POSITIVE [None]
  - LYMPHADENOPATHY [None]
  - PANCYTOPENIA [None]
  - POSTOPERATIVE INFECTION [None]
  - PRURITUS [None]
  - PYREXIA [None]
  - RASH [None]
  - RASH GENERALISED [None]
  - ULCER [None]
  - WHITE BLOOD CELL COUNT INCREASED [None]
